FAERS Safety Report 8115742-4 (Version None)
Quarter: 2012Q1

REPORT INFORMATION
  Report Type: 
  Country: None (occurrence: None)
  Receive Date: 20120206
  Receipt Date: 20120124
  Transmission Date: 20120608
  Serious: Yes (Other)
  Sender: FDA-Public Use
  Company Number: DE-JNJFOC-20120200868

PATIENT
  Age: 54 Year
  Sex: Female
  Weight: 87 kg

DRUGS (6)
  1. TRIMIPRAMINE MALEATE [Suspect]
     Indication: DEPRESSION
     Route: 048
     Dates: start: 20111001
  2. IBUPROFEN [Suspect]
     Indication: HEADACHE
     Dosage: 400-600MG; HAS TAKEN UP TO 1200MG /DAY AS NEEDED
     Route: 048
     Dates: start: 20110801
  3. LYRICA [Suspect]
     Route: 048
     Dates: start: 20111128
  4. PANTOPRAZOLE [Concomitant]
     Indication: PRODUCT USED FOR UNKNOWN INDICATION
  5. TRIMIPRAMINE MALEATE [Suspect]
     Route: 048
  6. LYRICA [Suspect]
     Indication: ANXIETY DISORDER
     Route: 048

REACTIONS (2)
  - HEPATIC ENZYME INCREASED [None]
  - CHOLELITHIASIS [None]
